FAERS Safety Report 10452738 (Version 2)
Quarter: 2014Q4

REPORT INFORMATION
  Report Type: Spontaneous
  Country: US (occurrence: None)
  Receive Date: 20140911
  Receipt Date: 20141027
  Transmission Date: 20150528
  Serious: Yes (Life-Threatening, Hospitalization)
  Sender: FDA-Public Use
  Company Number: INS201409-000186

PATIENT
  Age: 58 Year
  Sex: Male

DRUGS (1)
  1. SUBSYS [Suspect]
     Active Substance: FENTANYL
     Indication: CANCER PAIN
     Dosage: 1600 MCG, TWO SPRAY, TWO TO FOUR HOURS IF NEEDED,SUBLINGUAL
     Route: 060
     Dates: start: 20140106

REACTIONS (3)
  - General physical health deterioration [None]
  - Terminal state [None]
  - Hospice care [None]

NARRATIVE: CASE EVENT DATE: 20140801
